FAERS Safety Report 15308247 (Version 1)
Quarter: 2018Q3

REPORT INFORMATION
  Report Type: Spontaneous
  Country: US (occurrence: US)
  Receive Date: 20180822
  Receipt Date: 20180822
  Transmission Date: 20181010
  Serious: No
  Sender: FDA-Public Use
  Company Number: US-TEVA-2018-US-947482

PATIENT
  Sex: Male

DRUGS (1)
  1. LORAZEPAM. [Suspect]
     Active Substance: LORAZEPAM
     Route: 065

REACTIONS (5)
  - Anxiety [Unknown]
  - Chest discomfort [Unknown]
  - Drug ineffective [Unknown]
  - Abdominal discomfort [Unknown]
  - Oropharyngeal pain [Unknown]
